FAERS Safety Report 13997560 (Version 1)
Quarter: 2017Q3

REPORT INFORMATION
  Report Type: Spontaneous
  Country: US (occurrence: US)
  Receive Date: 20170921
  Receipt Date: 20170921
  Transmission Date: 20171128
  Serious: No
  Sender: FDA-Public Use
  Company Number: US-ALLERGAN-1702355US

PATIENT
  Sex: Female

DRUGS (2)
  1. PANTOPRAZOLE [Suspect]
     Active Substance: PANTOPRAZOLE
     Indication: FLATULENCE
     Route: 065
  2. SUCRALFATE UNK [Suspect]
     Active Substance: SUCRALFATE
     Indication: FLATULENCE
     Route: 065

REACTIONS (1)
  - Drug ineffective [Unknown]
